FAERS Safety Report 6194559-4 (Version None)
Quarter: 2009Q2

REPORT INFORMATION
  Report Type: 
  Country: None (occurrence: None)
  Receive Date: 20090515
  Receipt Date: 20090507
  Transmission Date: 20091009
  Serious: Yes (Hospitalization)
  Sender: FDA-Public Use
  Company Number: WAES 0905FRA00027

PATIENT
  Age: 40 Year
  Sex: Male

DRUGS (7)
  1. ISENTRESS [Suspect]
     Indication: HIV INFECTION
     Dosage: 400 MG/BID PO
     Route: 048
     Dates: start: 20070820
  2. TAB EMTRICITABINE (+) TENOFOVIR DISOPROXIL FUMARATE [Suspect]
     Indication: HIV INFECTION
     Dosage: 1 TAB/DAILY PO
     Route: 048
     Dates: start: 20051206
  3. TAB DARUNAVIR [Suspect]
     Indication: HIV INFECTION
     Dosage: 600 MG/BID PO
     Route: 048
     Dates: start: 20070820
  4. RITONAVIR [Suspect]
     Indication: HIV INFECTION
     Dosage: 100 MG/BID PO
     Route: 048
     Dates: start: 20041201
  5. TAB TMC-125 (ETRAVIRINE [Suspect]
     Indication: HIV INFECTION
     Dosage: 200 MG/BID PO
     Route: 048
     Dates: start: 20070820
  6. DESLORATADINE [Concomitant]
  7. FENOFIBRATE [Concomitant]

REACTIONS (2)
  - MYOCARDIAL ISCHAEMIA [None]
  - STENT PLACEMENT [None]
